FAERS Safety Report 9053825 (Version 1)
Quarter: 2013Q1

REPORT INFORMATION
  Report Type: Spontaneous
  Country: US (occurrence: None)
  Receive Date: 20130201
  Receipt Date: 20130201
  Transmission Date: 20140127
  Serious: Yes (Other)
  Sender: FDA-Public Use
  Company Number: None

PATIENT
  Age: 22 Year
  Sex: Female
  Weight: 52.16 kg

DRUGS (1)
  1. CLINDAMYCIN [Suspect]
     Indication: POST PROCEDURAL INFECTION
     Dates: start: 20120505, end: 20120512

REACTIONS (3)
  - Restlessness [None]
  - Clostridium difficile colitis [None]
  - Weight decreased [None]
